FAERS Safety Report 4478935-3 (Version None)
Quarter: 2004Q3

REPORT INFORMATION
  Report Type: 
  Country: None (occurrence: None)
  Receive Date: 20040923
  Receipt Date: 20040820
  Transmission Date: 20050211
  Serious: No
  Sender: FDA-Public Use
  Company Number: USA040568430

PATIENT
  Age: 74 Year
  Sex: Female
  Weight: 66 kg

DRUGS (5)
  1. FORTEO [Suspect]
     Indication: OSTEOPOROSIS
     Dosage: 20 UG/L DAY
     Dates: start: 20040413
  2. DESYREL [Concomitant]
  3. ZOLOFT [Concomitant]
  4. NEXIUM [Concomitant]
  5. CALCIUM [Concomitant]

REACTIONS (2)
  - ANXIETY [None]
  - MUSCLE SPASMS [None]
